FAERS Safety Report 11272724 (Version 1)
Quarter: 2015Q3

REPORT INFORMATION
  Report Type: Report from Study
  Country: FR (occurrence: FR)
  Receive Date: 20150715
  Receipt Date: 20150715
  Transmission Date: 20151125
  Serious: Yes (Hospitalization, Other)
  Sender: FDA-Public Use
  Company Number: PHHY2015FR081938

PATIENT
  Age: 68 Year
  Sex: Male

DRUGS (5)
  1. ESIDREX [Concomitant]
     Active Substance: HYDROCHLOROTHIAZIDE
     Indication: PRODUCT USED FOR UNKNOWN INDICATION
     Dosage: 12.5 MG, UNK
     Route: 065
     Dates: start: 20110707, end: 20110908
  2. PROGRAF [Concomitant]
     Active Substance: TACROLIMUS\TACROLIMUS ANHYDROUS
     Indication: PRODUCT USED FOR UNKNOWN INDICATION
     Route: 065
  3. CERTICAN [Suspect]
     Active Substance: EVEROLIMUS
     Indication: RENAL TRANSPLANT
     Dosage: UNK
     Route: 065
     Dates: start: 20100826, end: 20101204
  4. CELLCEPT [Concomitant]
     Active Substance: MYCOPHENOLATE MOFETIL\MYCOPHENOLATE MOFETIL HYDROCHLORIDE
     Indication: IMMUNOSUPPRESSION
     Dosage: 2 G, QD
     Route: 048
     Dates: start: 20100616
  5. CERTICAN [Suspect]
     Active Substance: EVEROLIMUS
     Indication: COMPLICATIONS OF TRANSPLANTED KIDNEY

REACTIONS (7)
  - Diarrhoea [Recovered/Resolved]
  - Leukopenia [Unknown]
  - Cytomegalovirus infection [Recovered/Resolved]
  - Adrenal insufficiency [Not Recovered/Not Resolved]
  - Asthenia [Unknown]
  - Acute kidney injury [Recovered/Resolved]
  - Pyrexia [Unknown]

NARRATIVE: CASE EVENT DATE: 20110801
